FAERS Safety Report 19966773 (Version 2)
Quarter: 2021Q4

REPORT INFORMATION
  Report Type: Spontaneous
  Country: None (occurrence: GB)
  Receive Date: 20211018
  Receipt Date: 20211125
  Transmission Date: 20220303
  Serious: Yes (Other)
  Sender: FDA-Public Use
  Company Number: GB-ASCEND THERAPEUTICS US, LLC-2120705

PATIENT
  Age: 49 Year
  Sex: Female
  Weight: 63.50 kg

DRUGS (6)
  1. ESTROGEL [Suspect]
     Active Substance: ESTRADIOL
     Indication: Menopausal symptoms
     Route: 061
     Dates: start: 20210917, end: 20210930
  2. ESTROGEL [Suspect]
     Active Substance: ESTRADIOL
  3. ESTRADIOL [Suspect]
     Active Substance: ESTRADIOL
     Route: 061
     Dates: start: 20210917, end: 20210930
  4. EVOREL(ESTRADIOL) [Concomitant]
     Route: 065
  5. UTROGESTAN(PROGESTERONE) [Concomitant]
     Route: 065
  6. VAGIFEM [Concomitant]
     Active Substance: ESTRADIOL
     Route: 065

REACTIONS (7)
  - Hot flush [Unknown]
  - Night sweats [Unknown]
  - Anger [Unknown]
  - Arthralgia [Unknown]
  - Feeling abnormal [Unknown]
  - Drug ineffective [Unknown]
  - Menopausal symptoms [Unknown]

NARRATIVE: CASE EVENT DATE: 20210919
